FAERS Safety Report 8953638 (Version 1)
Quarter: 2012Q4

REPORT INFORMATION
  Report Type: Report from Study
  Country: CA (occurrence: CA)
  Receive Date: 20121206
  Receipt Date: 20121206
  Transmission Date: 20130627
  Serious: Yes (Other)
  Sender: FDA-Public Use
  Company Number: CA-ROCHE-GNE255251

PATIENT
  Sex: Female
  Weight: 119.13 kg

DRUGS (2)
  1. XOLAIR [Suspect]
     Indication: ASTHMA
     Dosage: 300 mg, UNK
     Route: 058
     Dates: start: 20071003
  2. XOLAIR [Suspect]
     Route: 058
     Dates: start: 20121031

REACTIONS (5)
  - Pneumonia [Recovering/Resolving]
  - Urinary tract infection [Unknown]
  - Weight decreased [Unknown]
  - Hypotension [Unknown]
  - Cough [Unknown]
